FAERS Safety Report 23886204 (Version 2)
Quarter: 2024Q3

REPORT INFORMATION
  Report Type: Spontaneous
  Country: US (occurrence: US)
  Receive Date: 20240522
  Receipt Date: 20240701
  Transmission Date: 20241016
  Serious: No
  Sender: CALLIDITAS THERAPEUTICS
  Company Number: US-Calliditas-2024CAL00751

PATIENT
  Age: 35 Year
  Sex: Female
  Weight: 76.2 kg

DRUGS (1)
  1. TARPEYO [Suspect]
     Active Substance: BUDESONIDE
     Indication: IgA nephropathy
     Route: 048
     Dates: start: 20240306

REACTIONS (5)
  - Oedema peripheral [Recovering/Resolving]
  - Oedema peripheral [Recovering/Resolving]
  - Muscle spasms [Unknown]
  - Drug ineffective [Unknown]
  - Blood pressure increased [Unknown]
